FAERS Safety Report 16038906 (Version 3)
Quarter: 2019Q4

REPORT INFORMATION
  Report Type: Spontaneous
  Country: US (occurrence: US)
  Receive Date: 20190306
  Receipt Date: 20191004
  Transmission Date: 20200122
  Serious: No
  Sender: FDA-Public Use
  Company Number: US-BIOGEN-2019BI00705271

PATIENT
  Age: 38 Year
  Sex: Male

DRUGS (4)
  1. TECFIDERA [Suspect]
     Active Substance: DIMETHYL FUMARATE
     Dosage: MAINTENANCE DOSE
     Route: 048
     Dates: start: 20190219
  2. TECFIDERA [Suspect]
     Active Substance: DIMETHYL FUMARATE
     Indication: MULTIPLE SCLEROSIS
     Dosage: STARTING DOSE
     Route: 048
     Dates: start: 20190122
  3. TECFIDERA [Suspect]
     Active Substance: DIMETHYL FUMARATE
     Route: 065
     Dates: start: 20190128
  4. TECFIDERA [Suspect]
     Active Substance: DIMETHYL FUMARATE
     Route: 065
     Dates: start: 20190318

REACTIONS (6)
  - Product dose omission [Unknown]
  - Rhinorrhoea [Unknown]
  - Sunburn [Unknown]
  - Abdominal pain upper [Unknown]
  - Nausea [Unknown]
  - Flushing [Unknown]

NARRATIVE: CASE EVENT DATE: 20190219
